FAERS Safety Report 10170043 (Version 1)
Quarter: 2014Q2

REPORT INFORMATION
  Report Type: Spontaneous
  Country: US (occurrence: US)
  Receive Date: 20140513
  Receipt Date: 20140513
  Transmission Date: 20141212
  Serious: No
  Sender: FDA-Public Use
  Company Number: US-PFIZER INC-2014126118

PATIENT
  Sex: Female

DRUGS (1)
  1. ADVIL PM [Suspect]
     Indication: PAIN
     Dosage: UNK

REACTIONS (2)
  - Fatigue [Unknown]
  - Somnolence [Unknown]
